FAERS Safety Report 16946474 (Version 1)
Quarter: 2019Q4

REPORT INFORMATION
  Report Type: Spontaneous
  Country: CN (occurrence: CN)
  Receive Date: 20191022
  Receipt Date: 20191022
  Transmission Date: 20200122
  Serious: Yes (Other)
  Sender: FDA-Public Use
  Company Number: CN-ASTRAZENECA-2019SF40722

PATIENT
  Age: 50 Year
  Sex: Female
  Weight: 47 kg

DRUGS (2)
  1. IRESSA [Suspect]
     Active Substance: GEFITINIB
     Indication: NON-SMALL CELL LUNG CANCER
     Route: 048
  2. UBENIMEX [Concomitant]
     Active Substance: UBENIMEX
     Indication: IMMUNE SYSTEM DISORDER

REACTIONS (6)
  - Drug resistance [Unknown]
  - Malignant neoplasm progression [Unknown]
  - Pruritus [Unknown]
  - Pustule [Unknown]
  - Dry skin [Unknown]
  - Skin disorder [Unknown]
